FAERS Safety Report 18620852 (Version 2)
Quarter: 2021Q2

REPORT INFORMATION
  Report Type: Spontaneous
  Country: DE (occurrence: DE)
  Receive Date: 20201216
  Receipt Date: 20210401
  Transmission Date: 20210717
  Serious: Yes (Other)
  Sender: FDA-Public Use
  Company Number: DE-SUN PHARMACEUTICAL INDUSTRIES LTD-2020RR-271349

PATIENT
  Age: 60 Year
  Sex: Male
  Weight: 105 kg

DRUGS (2)
  1. CIPROFLOXACIN. [Suspect]
     Active Substance: CIPROFLOXACIN
     Indication: INFECTION
     Dosage: 2X500 MG
     Route: 048
     Dates: start: 20201022, end: 20201027
  2. CIPROFLOXACIN. [Suspect]
     Active Substance: CIPROFLOXACIN
     Indication: INFECTION
     Dosage: 500 MILLIGRAM, UNK
     Route: 042
     Dates: start: 20201008

REACTIONS (11)
  - Panic attack [Unknown]
  - Anxiety disorder [Not Recovered/Not Resolved]
  - Thrombosis [Not Recovered/Not Resolved]
  - Tachycardia [Not Recovered/Not Resolved]
  - Asthenia [Unknown]
  - Insomnia [Unknown]
  - Tachycardia [Not Recovered/Not Resolved]
  - Tendon pain [Not Recovered/Not Resolved]
  - Restlessness [Unknown]
  - Arthralgia [Not Recovered/Not Resolved]
  - Hypertension [Not Recovered/Not Resolved]

NARRATIVE: CASE EVENT DATE: 20201013
